FAERS Safety Report 7096219-4 (Version None)
Quarter: 2010Q4

REPORT INFORMATION
  Report Type: 
  Country: None (occurrence: None)
  Receive Date: 20101109
  Receipt Date: 20101109
  Transmission Date: 20110411
  Serious: No
  Sender: FDA-Public Use
  Company Number: None

PATIENT
  Age: 50 Year
  Sex: Female
  Weight: 81.6475 kg

DRUGS (1)
  1. NEURONTIN [Suspect]
     Indication: CONVULSION PROPHYLAXIS

REACTIONS (4)
  - ANORGASMIA [None]
  - CRYING [None]
  - GENITAL HYPOAESTHESIA [None]
  - HYPOAESTHESIA [None]
